FAERS Safety Report 13024260 (Version 1)
Quarter: 2016Q4

REPORT INFORMATION
  Report Type: Spontaneous
  Country: CN (occurrence: CN)
  Receive Date: 20161213
  Receipt Date: 20161213
  Transmission Date: 20170207
  Serious: Yes (Other)
  Sender: FDA-Public Use
  Company Number: CN-BAYER-2016-228665

PATIENT
  Age: 10 Year
  Weight: 50 kg

DRUGS (3)
  1. KOGENATE FS [Suspect]
     Active Substance: ANTIHEMOPHILIC FACTOR, HUMAN RECOMBINANT
     Dosage: 250 U, 2-3 TIMES A WEEK
  2. KOGENATE FS [Suspect]
     Active Substance: ANTIHEMOPHILIC FACTOR, HUMAN RECOMBINANT
     Dosage: 500 U, CONSECUTIVE 3-4 DAYS AS TREATMENT FOR PROCEDURAL BLEEDING
  3. KOGENATE FS [Suspect]
     Active Substance: ANTIHEMOPHILIC FACTOR, HUMAN RECOMBINANT
     Dosage: UP TO 750U WHEN SYMPTOM AGGRAVATED

REACTIONS (2)
  - Procedural haemorrhage [None]
  - Drug ineffective [None]
